FAERS Safety Report 19855222 (Version 1)
Quarter: 2021Q3

REPORT INFORMATION
  Report Type: Spontaneous
  Country: US (occurrence: US)
  Receive Date: 20210920
  Receipt Date: 20210920
  Transmission Date: 20211014
  Serious: No
  Sender: FDA-Public Use
  Company Number: US-GLAXOSMITHKLINE-USCH2021064036

PATIENT
  Age: 80 Year
  Sex: Male

DRUGS (1)
  1. NICORETTE [Suspect]
     Active Substance: NICOTINE
     Indication: TOBACCO USER
     Dosage: UNK
     Dates: start: 20210825, end: 20210826

REACTIONS (2)
  - Nausea [Recovering/Resolving]
  - Illness [Recovering/Resolving]

NARRATIVE: CASE EVENT DATE: 20210825
